APPROVED DRUG PRODUCT: POTASSIUM ACETATE
Active Ingredient: POTASSIUM ACETATE
Strength: 2MEQ/ML
Dosage Form/Route: INJECTABLE;INJECTION
Application: A217515 | Product #001 | TE Code: AP
Applicant: FRESENIUS KABI USA LLC
Approved: Nov 27, 2024 | RLD: No | RS: No | Type: RX